FAERS Safety Report 16439736 (Version 1)
Quarter: 2019Q2

REPORT INFORMATION
  Report Type: Spontaneous
  Country: US (occurrence: US)
  Receive Date: 20190617
  Receipt Date: 20190617
  Transmission Date: 20190711
  Serious: Yes (Other)
  Sender: FDA-Public Use
  Company Number: US-ASTRAZENECA-2019SE87090

PATIENT
  Age: 81 Year
  Sex: Female
  Weight: 64.4 kg

DRUGS (3)
  1. LISINOPRIL. [Suspect]
     Active Substance: LISINOPRIL
     Indication: BLOOD PRESSURE ABNORMAL
     Route: 048
  2. LISINOPRIL. [Suspect]
     Active Substance: LISINOPRIL
     Indication: BLOOD PRESSURE ABNORMAL
     Route: 048
  3. TAGRISSO [Suspect]
     Active Substance: OSIMERTINIB
     Indication: NON-SMALL CELL LUNG CANCER STAGE IV
     Route: 048
     Dates: start: 201812, end: 201906

REACTIONS (14)
  - Malignant neoplasm progression [Unknown]
  - Depressed level of consciousness [Recovering/Resolving]
  - Blood viscosity increased [Unknown]
  - Asthenia [Recovering/Resolving]
  - Sleep disorder [Unknown]
  - Dry eye [Unknown]
  - Confusional state [Recovering/Resolving]
  - Depression [Unknown]
  - Syncope [Unknown]
  - Dehydration [Unknown]
  - Hypertension [Unknown]
  - Rash [Unknown]
  - Seizure [Unknown]
  - Electrocardiogram QT prolonged [Unknown]

NARRATIVE: CASE EVENT DATE: 2017
